FAERS Safety Report 12413878 (Version 1)
Quarter: 2016Q2

REPORT INFORMATION
  Report Type: Not Available
  Country: US (occurrence: US)
  Receive Date: 20160527
  Receipt Date: 20160527
  Transmission Date: 20160815
  Serious: Yes (Hospitalization)
  Sender: FDA-Public Use
  Company Number: US-ANIPHARMA-2016-US-003654

PATIENT
  Age: 24 Year
  Sex: Male

DRUGS (2)
  1. CIMETIDINE HYDROCHLORIDE (NON-SPECIFIC) [Suspect]
     Active Substance: CIMETIDINE HYDROCHLORIDE
     Dosage: UNKNOWN
     Route: 065
  2. LOPERAMIDE [Suspect]
     Active Substance: LOPERAMIDE
     Dosage: 400 MG DAILY
     Route: 065

REACTIONS (4)
  - Electrocardiogram QT prolonged [Recovered/Resolved]
  - Asthenia [Recovered/Resolved]
  - Ventricular tachycardia [Recovered/Resolved]
  - Drug interaction [Recovered/Resolved]
